FAERS Safety Report 5634531-3 (Version None)
Quarter: 2008Q1

REPORT INFORMATION
  Report Type: 
  Country: None (occurrence: None)
  Receive Date: 20080222
  Receipt Date: 20080218
  Transmission Date: 20080703
  Serious: Yes (Death, Hospitalization)
  Sender: FDA-Public Use
  Company Number: PHBS2007BR21565

PATIENT
  Age: 81 Year
  Sex: Male
  Weight: 70 kg

DRUGS (8)
  1. FORADIL [Suspect]
     Indication: PNEUMONIA
     Dosage: 1 DF, Q12H
     Dates: start: 20071225
  2. DICLAC [Concomitant]
     Indication: THROMBOSIS
     Dosage: 150 MG/D
     Route: 048
     Dates: start: 20070701
  3. BAMIFIX [Concomitant]
     Indication: PNEUMONIA
     Dosage: 300 MG, Q12H
     Route: 048
     Dates: start: 20071225
  4. RANITIDINE HYDROCHLORIDE [Concomitant]
     Dosage: 150 MG, Q12H
     Route: 048
     Dates: start: 20071225
  5. ENALAPRIL MALEATE [Concomitant]
     Indication: PNEUMONIA
     Dosage: 150 MG, Q12H
     Route: 048
     Dates: start: 20071225
  6. RISPERIDONE [Concomitant]
     Indication: SCHIZOPHRENIA
     Dosage: 2 MG, QD
     Route: 048
     Dates: start: 20040101
  7. CAPTOPRIL [Concomitant]
     Indication: HYPERTENSION
     Dosage: 250 MG, Q12H
     Route: 048
     Dates: start: 20020101
  8. DIOSMINE [Concomitant]
     Dosage: 450 MG, Q12H
     Route: 048
     Dates: start: 20030101

REACTIONS (4)
  - CARDIAC ARREST [None]
  - HYPERSENSITIVITY [None]
  - OEDEMA PERIPHERAL [None]
  - THROMBOSIS [None]
